FAERS Safety Report 24464342 (Version 1)
Quarter: 2024Q4

REPORT INFORMATION
  Report Type: Spontaneous
  Country: BR (occurrence: BR)
  Receive Date: 20241018
  Receipt Date: 20241018
  Transmission Date: 20250114
  Serious: Yes (Hospitalization, Other)
  Sender: SANDOZ
  Company Number: BR-002147023-NVSC2024BR202912

PATIENT
  Age: 49 Year
  Sex: Female

DRUGS (2)
  1. CIPROFLOXACIN [Suspect]
     Active Substance: CIPROFLOXACIN
     Indication: Diarrhoea infectious
     Dosage: UNK
     Route: 065
  2. COSENTYX [Suspect]
     Active Substance: SECUKINUMAB
     Indication: Product used for unknown indication
     Dosage: UNK
     Route: 065

REACTIONS (10)
  - Diarrhoea infectious [Unknown]
  - Sinusitis [Unknown]
  - Pyrexia [Unknown]
  - Viral myositis [Unknown]
  - COVID-19 [Unknown]
  - Decreased immune responsiveness [Unknown]
  - Muscle strength abnormal [Unknown]
  - Malaise [Unknown]
  - Visual impairment [Unknown]
  - Diarrhoea [Unknown]

NARRATIVE: CASE EVENT DATE: 20241010
